FAERS Safety Report 13861995 (Version 1)
Quarter: 2017Q3

REPORT INFORMATION
  Report Type: Report from Study
  Country: US (occurrence: US)
  Receive Date: 20170811
  Receipt Date: 20170811
  Transmission Date: 20171127
  Serious: Yes (Other)
  Sender: FDA-Public Use
  Company Number: US-ROCHE-1974568

PATIENT
  Age: 64 Year
  Sex: Female
  Weight: 59.9 kg

DRUGS (2)
  1. BEVACIZUMAB. [Suspect]
     Active Substance: BEVACIZUMAB
     Indication: MALIGNANT MELANOMA
     Dosage: INDUCTION (CYCLE=21 DAYS) 15/MG/KG ON DAY 1 OF CYCLES 1-4. ?MAINTENANCE (CYCLE = 21 DAYS). 15MG/KG I
     Route: 042
     Dates: start: 20170201
  2. IPILIMUMAB [Suspect]
     Active Substance: IPILIMUMAB
     Indication: MALIGNANT MELANOMA
     Dosage: INDUCTION (CYCLE=21 DAYS) 3MG/KG IV ON DAY 1 OF CYCLES 1-4.?MAINTENANCE (CYCLE = 21 DAYS)  3MG/KG IV
     Route: 042
     Dates: start: 20170201

REACTIONS (2)
  - Alanine aminotransferase increased [Unknown]
  - Aspartate aminotransferase increased [Unknown]

NARRATIVE: CASE EVENT DATE: 20170222
